FAERS Safety Report 14138340 (Version 1)
Quarter: 2017Q4

REPORT INFORMATION
  Report Type: Spontaneous
  Country: US (occurrence: US)
  Receive Date: 20171027
  Receipt Date: 20171027
  Transmission Date: 20180321
  Serious: No
  Sender: FDA-Public Use
  Company Number: US-ROCHE-1873656

PATIENT
  Sex: Female

DRUGS (2)
  1. TAMIFLU [Suspect]
     Active Substance: OSELTAMIVIR PHOSPHATE
     Indication: INFLUENZA
     Route: 065
  2. CLARITIN (UNITED STATES) [Concomitant]

REACTIONS (5)
  - Dizziness [Unknown]
  - Mass [Recovered/Resolved]
  - Diarrhoea [Unknown]
  - Vision blurred [Unknown]
  - Nausea [Unknown]
